FAERS Safety Report 5968340-2 (Version None)
Quarter: 2008Q4

REPORT INFORMATION
  Report Type: 
  Country: None (occurrence: None)
  Receive Date: 20081126
  Receipt Date: 20081118
  Transmission Date: 20090506
  Serious: Yes (Hospitalization)
  Sender: FDA-Public Use
  Company Number: FR-JNJFOC-20081103953

PATIENT
  Sex: Female

DRUGS (2)
  1. RISPERDAL [Suspect]
     Indication: DEMENTIA ALZHEIMER'S TYPE
     Route: 048
  2. EXELON [Suspect]
     Indication: DEMENTIA ALZHEIMER'S TYPE
     Route: 065

REACTIONS (3)
  - GAIT DISTURBANCE [None]
  - TORTICOLLIS [None]
  - TRISMUS [None]
